FAERS Safety Report 4888337-3 (Version None)
Quarter: 2006Q1

REPORT INFORMATION
  Report Type: 
  Country: None (occurrence: None)
  Receive Date: 20060123
  Receipt Date: 20060119
  Transmission Date: 20060701
  Serious: Yes (Other)
  Sender: FDA-Public Use
  Company Number: J200600059

PATIENT
  Age: 71 Year
  Sex: Female

DRUGS (4)
  1. SAWACILLIN [Suspect]
     Indication: HELICOBACTER INFECTION
     Dosage: 750MG TWICE PER DAY
     Route: 048
     Dates: start: 20051214, end: 20051220
  2. TAKEPRON [Suspect]
     Indication: HELICOBACTER INFECTION
     Dosage: 30MG TWICE PER DAY
     Route: 048
     Dates: start: 20051214, end: 20051220
  3. CLARITHROMYCIN [Suspect]
     Indication: HELICOBACTER INFECTION
     Dosage: 200MG TWICE PER DAY
     Route: 048
     Dates: start: 20051214, end: 20051220
  4. OMEPRAZOLE [Concomitant]
     Dosage: 20MG UNKNOWN
     Route: 042

REACTIONS (4)
  - BLOOD GLUCOSE DECREASED [None]
  - COLD SWEAT [None]
  - HYPOGLYCAEMIA [None]
  - PALPITATIONS [None]
